FAERS Safety Report 25424970 (Version 1)
Quarter: 2025Q2

REPORT INFORMATION
  Report Type: Spontaneous
  Country: US (occurrence: US)
  Receive Date: 20250611
  Receipt Date: 20250611
  Transmission Date: 20250717
  Serious: Yes (Other)
  Sender: UCB
  Company Number: US-UCBSA-2025033829

PATIENT

DRUGS (1)
  1. CIMZIA [Suspect]
     Active Substance: CERTOLIZUMAB PEGOL
     Indication: Rheumatoid arthritis
     Dates: start: 2023

REACTIONS (4)
  - Multifocal motor neuropathy [Not Recovered/Not Resolved]
  - Breast cancer [Recovered/Resolved]
  - Muscular weakness [Not Recovered/Not Resolved]
  - COVID-19 [Recovered/Resolved]
